FAERS Safety Report 5361488-5 (Version None)
Quarter: 2007Q2

REPORT INFORMATION
  Report Type: 
  Country: None (occurrence: None)
  Receive Date: 20070619
  Receipt Date: 20070613
  Transmission Date: 20071010
  Serious: Yes (Other)
  Sender: FDA-Public Use
  Company Number: US-BAYER-200614805GDS

PATIENT
  Age: 28 Year
  Sex: Female

DRUGS (4)
  1. ISOPTIN [Suspect]
     Indication: INTENTIONAL OVERDOSE
     Dosage: UNIT DOSE: 80 MG
     Route: 048
  2. ASPIRIN [Suspect]
     Indication: INTENTIONAL OVERDOSE
     Dosage: UNIT DOSE: 500 MG
     Route: 048
  3. CODEINE SUL TAB [Suspect]
     Indication: INTENTIONAL OVERDOSE
     Dosage: UNIT DOSE: 10 MG
     Route: 048
  4. POTASSIUM ACETATE [Suspect]
     Indication: INTENTIONAL OVERDOSE
     Route: 048

REACTIONS (7)
  - ATRIOVENTRICULAR BLOCK SECOND DEGREE [None]
  - BRADYCARDIA [None]
  - HEART DISEASE CONGENITAL [None]
  - METABOLIC ACIDOSIS [None]
  - NAUSEA [None]
  - SUICIDE ATTEMPT [None]
  - VOMITING [None]
